FAERS Safety Report 4551124-X (Version None)
Quarter: 2005Q1

REPORT INFORMATION
  Report Type: 
  Country: None (occurrence: None)
  Receive Date: 20050107
  Receipt Date: 20041230
  Transmission Date: 20050727
  Serious: Yes (Other)
  Sender: FDA-Public Use
  Company Number: S04-USA-08050-01

PATIENT
  Age: 42 Year
  Sex: Male

DRUGS (2)
  1. LEXAPRO [Suspect]
     Indication: DEPRESSION
     Dosage: 10 MG QD PO
     Route: 048
     Dates: start: 20041201, end: 20041201
  2. PROTONIX [Concomitant]

REACTIONS (3)
  - DRUG SCREEN POSITIVE [None]
  - GRAND MAL CONVULSION [None]
  - TONGUE BITING [None]
